FAERS Safety Report 6500335-2 (Version None)
Quarter: 2009Q4

REPORT INFORMATION
  Report Type: 
  Country: None (occurrence: None)
  Receive Date: 20091216
  Receipt Date: 20091208
  Transmission Date: 20100525
  Serious: Yes (Other)
  Sender: FDA-Public Use
  Company Number: US-SANOFI-AVENTIS-2009SA001674

PATIENT
  Age: 62 Year
  Sex: Female
  Weight: 131.54 kg

DRUGS (11)
  1. MULTAQ [Suspect]
     Indication: THROMBOSIS PROPHYLAXIS
     Route: 048
     Dates: start: 20091005
  2. AMIODARONE HCL [Suspect]
     Indication: ATRIAL FIBRILLATION
     Route: 048
     Dates: start: 20090709, end: 20091005
  3. COUMADIN [Suspect]
     Indication: THROMBOSIS PROPHYLAXIS
     Route: 048
     Dates: end: 20091001
  4. COUMADIN [Suspect]
     Dosage: TAKE AS DIRECTED
     Route: 048
     Dates: start: 20091001
  5. ASPIRIN [Concomitant]
     Route: 048
     Dates: start: 20080903
  6. GLIPIZIDE [Concomitant]
     Indication: DIABETES MELLITUS
     Route: 048
  7. METFORMIN [Concomitant]
     Indication: DIABETES MELLITUS
     Route: 048
  8. METOPROLOL SUCCINATE [Concomitant]
     Indication: ATRIAL FIBRILLATION
     Route: 048
     Dates: start: 20081106
  9. LASIX [Concomitant]
     Route: 048
     Dates: start: 20081106
  10. LASIX [Concomitant]
     Route: 048
     Dates: start: 20090410
  11. ATORVASTATIN CALCIUM [Concomitant]
     Route: 048
     Dates: start: 20081106

REACTIONS (1)
  - INTERNATIONAL NORMALISED RATIO INCREASED [None]
